FAERS Safety Report 5102845-1 (Version None)
Quarter: 2006Q3

REPORT INFORMATION
  Report Type: 
  Country: None (occurrence: None)
  Receive Date: 20060912
  Receipt Date: 20060829
  Transmission Date: 20061208
  Serious: Yes (Hospitalization)
  Sender: FDA-Public Use
  Company Number: US-SANOFI-SYNTHELABO-A03200605413

PATIENT
  Sex: Male

DRUGS (5)
  1. UROXATRAL [Concomitant]
     Dosage: UNK
     Route: 048
  2. ELIGARD [Suspect]
     Indication: PROSTATE CANCER
     Route: 058
     Dates: start: 20030101
  3. ANTICONVULSANT [Concomitant]
     Dosage: UNK
     Route: 048
     Dates: start: 20030101
  4. ADVIL [Concomitant]
     Dosage: UNK
     Route: 048
  5. NORCO [Concomitant]
     Dosage: UNK
     Route: 048

REACTIONS (1)
  - GRAND MAL CONVULSION [None]
